FAERS Safety Report 4609206-X (Version None)
Quarter: 2005Q1

REPORT INFORMATION
  Report Type: 
  Country: None (occurrence: None)
  Receive Date: 20050311
  Receipt Date: 20050225
  Transmission Date: 20050727
  Serious: Yes (Other)
  Sender: FDA-Public Use
  Company Number: 2000-BP-01809

PATIENT
  Age: 33 Year
  Sex: Male
  Weight: 68 kg

DRUGS (4)
  1. VIRAMUNE [Suspect]
     Indication: HIV INFECTION
     Dosage: 400 MG (200 MG); PO
     Route: 048
     Dates: start: 19990916, end: 20000914
  2. LAMIVUDINE (BLIND) [Concomitant]
  3. EMTRICITABINE (BLIND) [Concomitant]
  4. STAVUDINE [Concomitant]

REACTIONS (8)
  - ALANINE AMINOTRANSFERASE INCREASED [None]
  - ASPARTATE AMINOTRANSFERASE INCREASED [None]
  - BLOOD BILIRUBIN INCREASED [None]
  - BLOOD CREATINE PHOSPHOKINASE INCREASED [None]
  - JOINT INJURY [None]
  - METABOLIC DISORDER [None]
  - MUSCLE DISORDER [None]
  - SOFT TISSUE INJURY [None]
